FAERS Safety Report 5217992-3 (Version None)
Quarter: 2007Q1

REPORT INFORMATION
  Report Type: 
  Country: None (occurrence: None)
  Receive Date: 20070124
  Receipt Date: 20060524
  Transmission Date: 20070707
  Serious: No
  Sender: FDA-Public Use
  Company Number: US-AMGEN-US180811

PATIENT
  Sex: Male

DRUGS (9)
  1. EPOGEN [Suspect]
     Indication: DIALYSIS
     Route: 058
     Dates: start: 20050604
  2. NIFEDIPINE [Concomitant]
  3. NIFEREX [Concomitant]
  4. HECTORAL [Concomitant]
  5. DIOVAN [Concomitant]
  6. SENSIPAR [Concomitant]
  7. PHOSLO [Concomitant]
  8. ATENOLOL [Concomitant]
  9. NEPHRO-CAPS [Concomitant]

REACTIONS (1)
  - THERAPEUTIC RESPONSE DECREASED [None]
